FAERS Safety Report 24890425 (Version 2)
Quarter: 2025Q1

REPORT INFORMATION
  Report Type: Spontaneous
  Country: DE (occurrence: DE)
  Receive Date: 20250127
  Receipt Date: 20250207
  Transmission Date: 20250408
  Serious: Yes (Death)
  Sender: TEVA
  Company Number: DE-TEVA-VS-3290762

PATIENT

DRUGS (2)
  1. FLUDARABINE [Suspect]
     Active Substance: FLUDARABINE PHOSPHATE
     Indication: Acute myeloid leukaemia
     Route: 065
  2. IDARUBICIN HYDROCHLORIDE [Suspect]
     Active Substance: IDARUBICIN HYDROCHLORIDE
     Indication: Acute myeloid leukaemia
     Route: 065

REACTIONS (1)
  - Drug ineffective [Fatal]
